FAERS Safety Report 5739916-2 (Version None)
Quarter: 2008Q2

REPORT INFORMATION
  Report Type: 
  Country: None (occurrence: None)
  Receive Date: 20080516
  Receipt Date: 20080423
  Transmission Date: 20081010
  Serious: No
  Sender: FDA-Public Use
  Company Number: US-JNJFOC-20080407355

PATIENT
  Sex: Male

DRUGS (2)
  1. INVEGA [Suspect]
     Route: 048
  2. INVEGA [Suspect]
     Indication: SCHIZOPHRENIA
     Route: 048

REACTIONS (1)
  - TESTICULAR ATROPHY [None]
